FAERS Safety Report 9493803 (Version 2)
Quarter: 2013Q4

REPORT INFORMATION
  Report Type: Report from Study
  Country: CN (occurrence: CN)
  Receive Date: 20130902
  Receipt Date: 20131031
  Transmission Date: 20140711
  Serious: Yes (Other)
  Sender: FDA-Public Use
  Company Number: CN-ROCHE-1269355

PATIENT
  Age: 70 Year
  Sex: Male

DRUGS (1)
  1. PEG-INTERFERON ALFA 2A [Suspect]
     Indication: HEPATITIS C
     Dosage: FREQUENCY ACCORDING TO THE LAB EXAMINATION
     Route: 058
     Dates: start: 201308

REACTIONS (1)
  - White blood cell count decreased [Unknown]
